FAERS Safety Report 6328064-9 (Version None)
Quarter: 2009Q3

REPORT INFORMATION
  Report Type: 
  Country: None (occurrence: None)
  Receive Date: 20090825
  Receipt Date: 20081105
  Transmission Date: 20100115
  Serious: Yes (Other)
  Sender: FDA-Public Use
  Company Number: US-ABBOTT-08P-163-0487207-00

PATIENT
  Sex: Female
  Weight: 65.376 kg

DRUGS (9)
  1. SYNTHROID [Suspect]
     Indication: THYROIDECTOMY
     Dates: start: 19990101, end: 20081020
  2. SYNTHROID [Suspect]
     Dates: start: 20081022, end: 20081023
  3. SYNTHROID [Suspect]
     Dosage: TOOK HALF DOSE
     Dates: start: 20081025, end: 20081026
  4. SYNTHROID [Suspect]
     Dates: start: 20081027, end: 20081029
  5. SYNTHROID [Suspect]
     Dates: start: 20081030, end: 20081101
  6. SYNTHROID [Suspect]
     Dosage: TOOK HALF DOSE
     Dates: start: 20081103, end: 20081107
  7. SYNTHROID [Suspect]
     Dates: start: 20081105
  8. SYNTHROID [Suspect]
     Dates: start: 20081108
  9. KAPSOVIT [Concomitant]
     Indication: DRUG USE FOR UNKNOWN INDICATION
     Dosage: TAKES OCCASIONALLY

REACTIONS (6)
  - AGITATION [None]
  - CHEST PAIN [None]
  - DIZZINESS [None]
  - DYSPNOEA [None]
  - ELECTROCARDIOGRAM T WAVE INVERSION [None]
  - PALPITATIONS [None]
